FAERS Safety Report 21328184 (Version 1)
Quarter: 2022Q3

REPORT INFORMATION
  Report Type: Spontaneous
  Country: US (occurrence: None)
  Receive Date: 20220912
  Receipt Date: 20220912
  Transmission Date: 20221027
  Serious: No
  Sender: FDA-Public Use
  Company Number: None

PATIENT
  Sex: 0

DRUGS (1)
  1. DIPRIVAN [Suspect]
     Active Substance: PROPOFOL

REACTIONS (4)
  - Liquid product physical issue [None]
  - Product administration interrupted [None]
  - Product contamination physical [None]
  - Product container seal issue [None]

NARRATIVE: CASE EVENT DATE: 20220907
